FAERS Safety Report 24287699 (Version 1)
Quarter: 2024Q3

REPORT INFORMATION
  Report Type: Spontaneous
  Country: GB (occurrence: GB)
  Receive Date: 20240905
  Receipt Date: 20240905
  Transmission Date: 20241017
  Serious: Yes (Hospitalization)
  Sender: AMERICAN REGENT
  Company Number: GB-AMERICAN REGENT INC-2024003371

PATIENT
  Age: 80 Year
  Sex: Female

DRUGS (2)
  1. FERINJECT [Suspect]
     Active Substance: FERRIC CARBOXYMALTOSE
     Indication: Product used for unknown indication
     Dosage: 1000 MILLIGRAM (2 X 1,000MG DOSES OF FERINJECT WITHIN THE SPACE OF 7 DAYS)
     Route: 042
  2. FERINJECT [Suspect]
     Active Substance: FERRIC CARBOXYMALTOSE
     Dosage: 1000 MILLIGRAM (2 X 1,000MG DOSES OF FERINJECT WITHIN THE SPACE OF 7 DAYS)
     Route: 042

REACTIONS (3)
  - Inappropriate schedule of product administration [Unknown]
  - Overdose [Unknown]
  - No adverse event [Unknown]
